FAERS Safety Report 17127858 (Version 1)
Quarter: 2019Q4

REPORT INFORMATION
  Report Type: Spontaneous
  Country: US (occurrence: US)
  Receive Date: 20191114
  Receipt Date: 20191114
  Transmission Date: 20200122
  Serious: No
  Sender: FDA-Public Use
  Company Number: None

PATIENT
  Age: 73 Year
  Sex: Male
  Weight: 77.11 kg

DRUGS (1)
  1. ESCITAOPRAM 10MG TEVA P [Suspect]
     Active Substance: ESCITALOPRAM OXALATE
     Indication: DEPRESSION
     Dosage: ?          QUANTITY:1 PILL;?
     Route: 048
     Dates: start: 20170901

REACTIONS (3)
  - Depressed mood [None]
  - Product substitution issue [None]
  - Influenza [None]

NARRATIVE: CASE EVENT DATE: 20191015
